FAERS Safety Report 6433970-0 (Version None)
Quarter: 2009Q4

REPORT INFORMATION
  Report Type: 
  Country: None (occurrence: None)
  Receive Date: 20091106
  Receipt Date: 20091106
  Transmission Date: 20100525
  Serious: No
  Sender: FDA-Public Use
  Company Number: None

PATIENT
  Sex: Female
  Weight: 65.9 kg

DRUGS (1)
  1. TYSABRI [Suspect]
     Indication: MULTIPLE SCLEROSIS
     Dosage: 300MG Q28DAYS IV 041
     Route: 042
     Dates: start: 20060906, end: 20090806

REACTIONS (1)
  - LENTIGO MALIGNA STAGE UNSPECIFIED [None]
